FAERS Safety Report 10341861 (Version 2)
Quarter: 2014Q4

REPORT INFORMATION
  Report Type: Report from Study
  Country: BJ (occurrence: BJ)
  Receive Date: 20140725
  Receipt Date: 20141003
  Transmission Date: 20150528
  Serious: Yes (Death, Hospitalization)
  Sender: FDA-Public Use
  Company Number: PHHY2014BJ091238

PATIENT
  Age: 19 Year
  Sex: Male

DRUGS (9)
  1. VINCRISTINE [Concomitant]
     Active Substance: VINCRISTINE
     Indication: PRODUCT USED FOR UNKNOWN INDICATION
     Dosage: 1 MG, QW
     Route: 042
  2. GLIVEC [Suspect]
     Active Substance: IMATINIB MESYLATE
     Dosage: 4 DF, PER DAY
     Route: 065
  3. LINCOMYCIN [Concomitant]
     Active Substance: LINCOMYCIN
     Indication: PRODUCT USED FOR UNKNOWN INDICATION
     Dosage: 500 MG, (2 CAPS TWICE A DAY)
     Route: 065
  4. GLIVEC [Suspect]
     Active Substance: IMATINIB MESYLATE
     Dosage: 6 DF, DAILY
     Route: 065
     Dates: start: 20130219
  5. CIPLOX [Concomitant]
     Active Substance: CIPROFLOXACIN HYDROCHLORIDE
     Indication: PRODUCT USED FOR UNKNOWN INDICATION
     Dosage: 1 DF, TID (500MG X 3 1 TBL / DAY)
  6. HYDREA [Concomitant]
     Active Substance: HYDROXYUREA
     Indication: PRODUCT USED FOR UNKNOWN INDICATION
     Dosage: 4 DF, PER DAY
     Route: 065
  7. GLIVEC [Suspect]
     Active Substance: IMATINIB MESYLATE
     Indication: CHRONIC MYELOID LEUKAEMIA
     Dosage: 400 MG, UNK
     Route: 065
     Dates: start: 20121217
  8. ENDOXAN [Concomitant]
     Active Substance: CYCLOPHOSPHAMIDE
     Indication: PRODUCT USED FOR UNKNOWN INDICATION
     Dosage: 1 DF, DAILY 4 DAYS TREATMENT
     Route: 065
  9. ZYLORIC [Concomitant]
     Active Substance: ALLOPURINOL
     Indication: PRODUCT USED FOR UNKNOWN INDICATION
     Dosage: 1 DF, PER DAY
     Route: 065

REACTIONS (2)
  - Death [Fatal]
  - Osteoarthritis [Unknown]

NARRATIVE: CASE EVENT DATE: 20130410
